FAERS Safety Report 25838728 (Version 2)
Quarter: 2025Q4

REPORT INFORMATION
  Report Type: Spontaneous
  Country: US (occurrence: US)
  Receive Date: 20250924
  Receipt Date: 20251014
  Transmission Date: 20260119
  Serious: No
  Sender: CIPLA
  Company Number: US-CIPLA LTD.-2025US11610

PATIENT

DRUGS (1)
  1. SAJAZIR [Suspect]
     Active Substance: ICATIBANT ACETATE
     Indication: Complement factor abnormal
     Dosage: 30 MILLIGRAM, PRN
     Route: 058

REACTIONS (2)
  - Injection site pain [Unknown]
  - Tooth disorder [Unknown]
